FAERS Safety Report 23368656 (Version 2)
Quarter: 2024Q1

REPORT INFORMATION
  Report Type: Report from Study
  Country: IT (occurrence: IT)
  Receive Date: 20240105
  Receipt Date: 20240117
  Transmission Date: 20240409
  Serious: No
  Sender: FDA-Public Use
  Company Number: IT-Merck Healthcare KGaA-2023497626

PATIENT
  Age: 55 Year
  Sex: Female

DRUGS (1)
  1. CLADRIBINE [Suspect]
     Active Substance: CLADRIBINE
     Indication: Relapsing multiple sclerosis
     Dosage: FIRST CYCLE THERAPY
     Dates: start: 20220501, end: 20220602

REACTIONS (1)
  - Renal colic [Recovered/Resolved]

NARRATIVE: CASE EVENT DATE: 20230416
